FAERS Safety Report 7301969-8 (Version None)
Quarter: 2011Q1

REPORT INFORMATION
  Report Type: 
  Country: None (occurrence: None)
  Receive Date: 20110218
  Receipt Date: 20110210
  Transmission Date: 20110831
  Serious: Yes (Other)
  Sender: FDA-Public Use
  Company Number: DE-ROCHE-760004

PATIENT
  Age: 66 Year
  Sex: Female

DRUGS (1)
  1. BEVACIZUMAB [Suspect]
     Route: 065

REACTIONS (3)
  - SYNCOPE [None]
  - COR PULMONALE ACUTE [None]
  - PULMONARY EMBOLISM [None]
